FAERS Safety Report 6008518 (Version 4)
Quarter: 2018Q4

REPORT INFORMATION
  Report Type: Spontaneous
  Country: IT (occurrence: IT)
  Receive Date: 20060321
  Receipt Date: 20181210
  Transmission Date: 20190205
  Serious: Yes (Hospitalization, Other)
  Sender: FDA-Public Use
  Company Number: IT-AVENTIS-200612521GDDC

PATIENT
  Age: 45 Year
  Sex: Female

DRUGS (2)
  1. KETEK [Suspect]
     Active Substance: TELITHROMYCIN
     Indication: EAR INFECTION
     Dosage: 800 MG, QD
     Route: 048
     Dates: start: 20060113, end: 20060113
  2. LOCALYN [FLUOCINOLONE ACETONIDE] [Concomitant]
     Indication: EAR INFECTION
     Dosage: 9 DROP
     Route: 061
     Dates: start: 20060113, end: 20060113

REACTIONS (3)
  - Hepatitis [Not Recovered/Not Resolved]
  - Jaundice [Not Recovered/Not Resolved]
  - Cholecystitis [Not Recovered/Not Resolved]

NARRATIVE: CASE EVENT DATE: 20060113
